FAERS Safety Report 6348489-5 (Version None)
Quarter: 2009Q3

REPORT INFORMATION
  Report Type: 
  Country: None (occurrence: None)
  Receive Date: 20090911
  Receipt Date: 20090901
  Transmission Date: 20100115
  Serious: Yes (Hospitalization)
  Sender: FDA-Public Use
  Company Number: US-ELI_LILLY_AND_COMPANY-US200907003699

PATIENT
  Sex: Male
  Weight: 77 kg

DRUGS (19)
  1. PEMETREXED [Suspect]
     Indication: NON-SMALL CELL LUNG CANCER
     Dosage: 500 MG/M2, OTHER
     Route: 042
     Dates: start: 20090708, end: 20090701
  2. PEMETREXED [Suspect]
     Dosage: UNK, OTHER
     Route: 042
     Dates: start: 20090101
  3. TARCEVA [Suspect]
     Indication: NON-SMALL CELL LUNG CANCER
     Dosage: 150 MG, OTHER
     Route: 048
     Dates: start: 20090709, end: 20090701
  4. TARCEVA [Suspect]
     Dosage: UNK, UNK
     Route: 048
     Dates: start: 20090101
  5. FOLIC ACID [Concomitant]
     Indication: VITAMIN SUPPLEMENTATION
     Dates: start: 20090701
  6. VITAMIN B-12 [Concomitant]
     Indication: VITAMIN SUPPLEMENTATION
     Dates: start: 20090701
  7. LISINOPRIL [Concomitant]
  8. METOPROLOL TARTRATE [Concomitant]
  9. IMDUR [Concomitant]
  10. PLAVIX [Concomitant]
  11. PRAVASTATIN [Concomitant]
  12. ASPIRIN [Concomitant]
  13. ARICEPT [Concomitant]
  14. COLACE [Concomitant]
  15. VITAMIN D [Concomitant]
  16. ADVAIR HFA [Concomitant]
  17. SPIRIVA [Concomitant]
  18. PREDNISONE [Concomitant]
  19. BENADRYL [Concomitant]

REACTIONS (1)
  - ENTERITIS [None]
